FAERS Safety Report 9867071 (Version 1)
Quarter: 2014Q1

REPORT INFORMATION
  Report Type: Spontaneous
  Country: US (occurrence: US)
  Receive Date: 20140204
  Receipt Date: 20140204
  Transmission Date: 20141002
  Serious: No
  Sender: FDA-Public Use
  Company Number: US-BAYER-2014-008344

PATIENT
  Sex: Female

DRUGS (2)
  1. OCELLA [Suspect]
     Indication: ORAL CONTRACEPTION
     Route: 048
  2. YAZ [Suspect]
     Indication: ORAL CONTRACEPTION
     Route: 048

REACTIONS (4)
  - Mood altered [Recovered/Resolved]
  - Emotional disorder [Recovered/Resolved]
  - Mood altered [Recovered/Resolved]
  - Emotional disorder [Recovered/Resolved]
